FAERS Safety Report 4618518-5 (Version None)
Quarter: 2005Q1

REPORT INFORMATION
  Report Type: 
  Country: None (occurrence: None)
  Receive Date: 20050324
  Receipt Date: 20050309
  Transmission Date: 20050727
  Serious: Yes (Death)
  Sender: FDA-Public Use
  Company Number: A-CH2005-08872

PATIENT
  Age: 64 Year
  Sex: Female
  Weight: 83 kg

DRUGS (10)
  1. TRACLEER [Suspect]
     Indication: PULMONARY HYPERTENSION
     Dosage: 31.25 MG, BID, ORAL
     Route: 048
     Dates: start: 20041125
  2. PANTOPRAZOLE (PANTOPRAZOLE) [Concomitant]
  3. FUROSEMIDE [Concomitant]
  4. ALLOPURINOL [Concomitant]
  5. AMIODARONE HCL [Concomitant]
  6. DIGITOXIN TAB [Concomitant]
  7. PHENPROCOUMON (PHENPROCOUMON) [Concomitant]
  8. INSULIN [Concomitant]
  9. FENOTEROL (FENOTEROL) [Concomitant]
  10. FLUTICASONE PROPIONATE [Concomitant]

REACTIONS (2)
  - COR PULMONALE [None]
  - RIGHT VENTRICULAR FAILURE [None]
